FAERS Safety Report 22141377 (Version 1)
Quarter: 2023Q1

REPORT INFORMATION
  Report Type: Spontaneous
  Country: CA (occurrence: CA)
  Receive Date: 20230327
  Receipt Date: 20230327
  Transmission Date: 20230417
  Serious: No
  Sender: FDA-Public Use
  Company Number: CA-PFIZER INC-202300122352

PATIENT
  Age: 28 Year
  Sex: Female

DRUGS (2)
  1. ABRILADA [Suspect]
     Active Substance: ADALIMUMAB-AFZB
     Indication: Crohn^s disease
     Dosage: 160 MG AT WEEK 0, 80 MG AT WEEK 2. 40MG EVERY 2 WEEKS BEGINNING AT WEEK 4.
     Route: 058
     Dates: start: 20220425
  2. ABRILADA [Suspect]
     Active Substance: ADALIMUMAB-AFZB
     Dosage: 160 MG AT WEEK 0, 80 MG AT WEEK 2. 40MG EVERY 2 WEEKS BEGINNING AT WEEK 4.
     Route: 058

REACTIONS (5)
  - Injection site pain [Recovering/Resolving]
  - Injection site bruising [Not Recovered/Not Resolved]
  - Device mechanical issue [Unknown]
  - Poor quality device used [Unknown]
  - Device difficult to use [Unknown]

NARRATIVE: CASE EVENT DATE: 20230319
